FAERS Safety Report 9507235 (Version 1)
Quarter: 2013Q1

REPORT INFORMATION
  Report Type: Spontaneous
  Country: US (occurrence: None)
  Receive Date: 20130305
  Receipt Date: 20130305
  Transmission Date: 20140127
  Serious: Yes (Other)
  Sender: FDA-Public Use
  Company Number: 163-21880-12052491

PATIENT
  Age: 82 Year
  Sex: Male
  Weight: 97.5 kg

DRUGS (2)
  1. REVLIMID [Suspect]
     Indication: PLASMA CELL MYELOMA
     Dosage: 10 MG 21 IN 28 D, PO
     Route: 048
     Dates: start: 20100101, end: 20100220
  2. OMEPRAZOLE (OMEPRAZOLE) [Concomitant]

REACTIONS (3)
  - Diarrhoea [None]
  - Fatigue [None]
  - Disease progression [None]
